FAERS Safety Report 10904995 (Version 1)
Quarter: 2015Q1

REPORT INFORMATION
  Report Type: Spontaneous
  Country: US (occurrence: None)
  Receive Date: 20150304
  Receipt Date: 20150304
  Transmission Date: 20150721
  Serious: Yes (Disabling)
  Sender: FDA-Public Use
  Company Number: None

PATIENT
  Age: 37 Year
  Sex: Female
  Weight: 48.99 kg

DRUGS (4)
  1. BIRTH CONTROL (CAMRESE) [Concomitant]
  2. DIFFERIN GEL [Concomitant]
     Active Substance: ADAPALENE
  3. KLONOPIN [Concomitant]
     Active Substance: CLONAZEPAM
  4. LAMISIL [Suspect]
     Active Substance: TERBINAFINE HYDROCHLORIDE
     Indication: ONYCHOMYCOSIS
     Dosage: 1 PILL
     Route: 048
     Dates: start: 20140812, end: 20140828

REACTIONS (25)
  - Asthenia [None]
  - Mouth swelling [None]
  - Lip swelling [None]
  - Ageusia [None]
  - Skin burning sensation [None]
  - Hypersomnia [None]
  - Rash [None]
  - Lip disorder [None]
  - Tongue disorder [None]
  - Paraesthesia oral [None]
  - Stomatitis [None]
  - Muscle spasms [None]
  - Polymenorrhoea [None]
  - Feeling abnormal [None]
  - Chills [None]
  - Weight decreased [None]
  - Nausea [None]
  - Drug clearance decreased [None]
  - Hypophagia [None]
  - Arthralgia [None]
  - Paraesthesia [None]
  - Oropharyngeal pain [None]
  - Genital paraesthesia [None]
  - Diarrhoea [None]
  - Pollakiuria [None]

NARRATIVE: CASE EVENT DATE: 20140828
